FAERS Safety Report 14823690 (Version 6)
Quarter: 2019Q1

REPORT INFORMATION
  Report Type: Report from Study
  Country: IT (occurrence: IT)
  Receive Date: 20180428
  Receipt Date: 20190121
  Transmission Date: 20190417
  Serious: Yes (Hospitalization, Other)
  Sender: FDA-Public Use
  Company Number: IT-AUROBINDO-AUR-APL-2018-022565

PATIENT
  Age: 58 Year
  Sex: Male
  Weight: 109 kg

DRUGS (7)
  1. GLIBENCLAMIDE [Concomitant]
     Active Substance: GLYBURIDE
     Indication: PRODUCT USED FOR UNKNOWN INDICATION
     Dosage: UNK
     Route: 065
  2. INFLUENZA VIRUS VACCINE [Interacting]
     Active Substance: INFLUENZA VIRUS VACCINE
     Indication: IMMUNISATION
     Dosage: UNK
     Route: 065
  3. SIMVASTATIN. [Interacting]
     Active Substance: SIMVASTATIN
     Indication: PRODUCT USED FOR UNKNOWN INDICATION
     Dosage: REGIMEN 1, LIPID-MODIFYING AGENT
     Route: 065
  4. ASPIRIN                            /00002701/ [Interacting]
     Active Substance: ASPIRIN
     Indication: PRODUCT USED FOR UNKNOWN INDICATION
     Dosage: UNK
     Route: 065
  5. GLYBURIDE. [Interacting]
     Active Substance: GLYBURIDE
     Indication: PRODUCT USED FOR UNKNOWN INDICATION
     Dosage: UNK
     Route: 065
  6. INFLUENZA VIRUS VACCINE [Interacting]
     Active Substance: INFLUENZA VIRUS VACCINE
     Indication: INFLUENZA IMMUNISATION
  7. SPIRONOLACTONE. [Suspect]
     Active Substance: SPIRONOLACTONE
     Indication: PRODUCT USED FOR UNKNOWN INDICATION
     Dosage: UNK
     Route: 065

REACTIONS (21)
  - Gait disturbance [Unknown]
  - Rhabdomyolysis [Unknown]
  - Areflexia [Unknown]
  - Hepatic pain [Unknown]
  - Platelet count normal [Unknown]
  - Haemodialysis [Unknown]
  - Localised oedema [Unknown]
  - Drug interaction [Unknown]
  - Generalised oedema [Unknown]
  - Back pain [Unknown]
  - Oliguria [Unknown]
  - Acute kidney injury [Unknown]
  - Pulmonary congestion [Unknown]
  - Pain in extremity [Unknown]
  - Oedema peripheral [Unknown]
  - Myalgia [Unknown]
  - Scrotal oedema [Unknown]
  - Dysuria [Unknown]
  - Quadriparesis [Unknown]
  - Hepatomegaly [Unknown]
  - Dehydration [Unknown]
